FAERS Safety Report 4306886-3 (Version None)
Quarter: 2004Q1

REPORT INFORMATION
  Report Type: 
  Country: None (occurrence: None)
  Receive Date: 20040227
  Receipt Date: 20040217
  Transmission Date: 20041129
  Serious: Yes (Hospitalization)
  Sender: FDA-Public Use
  Company Number: SE-GLAXOSMITHKLINE-B0323610A

PATIENT
  Age: 66 Year
  Sex: Female

DRUGS (1)
  1. ZYBAN [Suspect]
     Route: 048
     Dates: start: 20031106, end: 20031113

REACTIONS (1)
  - DEEP VEIN THROMBOSIS [None]
